FAERS Safety Report 5201251-9 (Version None)
Quarter: 2007Q1

REPORT INFORMATION
  Report Type: 
  Country: None (occurrence: None)
  Receive Date: 20070103
  Receipt Date: 20061220
  Transmission Date: 20070707
  Serious: Yes (Other)
  Sender: FDA-Public Use
  Company Number: US018949

PATIENT
  Age: 70 Year
  Sex: Male

DRUGS (6)
  1. TRISENOX [Suspect]
     Indication: ACUTE PROMYELOCYTIC LEUKAEMIA
     Dosage: 77.8 MG QD INTRAVENOUS DRIP
     Route: 041
     Dates: start: 20060531, end: 20060602
  2. TRETINOIN [Concomitant]
  3. HYDROXYCARBAMIDE [Concomitant]
  4. NAFAMOSTAT MESILATE [Concomitant]
  5. CEFMETAZOLE SODIUM [Concomitant]
  6. SPIRONOLACTONE [Concomitant]

REACTIONS (3)
  - ELECTROCARDIOGRAM QT CORRECTED INTERVAL PROLONGED [None]
  - VENTRICULAR EXTRASYSTOLES [None]
  - VENTRICULAR TACHYCARDIA [None]
